FAERS Safety Report 7884251-X (Version None)
Quarter: 2011Q4

REPORT INFORMATION
  Report Type: 
  Country: None (occurrence: None)
  Receive Date: 20111102
  Receipt Date: 20111029
  Transmission Date: 20120403
  Serious: No
  Sender: FDA-Public Use
  Company Number: US-PFIZER INC-2011264805

PATIENT
  Sex: Female

DRUGS (2)
  1. GABAPENTIN [Suspect]
     Indication: NERVE INJURY
     Dosage: UNK
  2. GABAPENTIN [Suspect]
     Indication: HYPOAESTHESIA ORAL

REACTIONS (4)
  - NERVE INJURY [None]
  - HYPOAESTHESIA ORAL [None]
  - NEUROPATHY PERIPHERAL [None]
  - PARAESTHESIA [None]
